FAERS Safety Report 5101394-4 (Version None)
Quarter: 2006Q3

REPORT INFORMATION
  Report Type: 
  Country: None (occurrence: None)
  Receive Date: 20060911
  Receipt Date: 20060612
  Transmission Date: 20061208
  Serious: Yes (Other)
  Sender: FDA-Public Use
  Company Number: 14655

PATIENT
  Age: 39 Year
  Sex: Female

DRUGS (4)
  1. WELLBUTRIN XL [Suspect]
     Indication: MAJOR DEPRESSION
     Dates: start: 20031022
  2. AMBIEN [Concomitant]
  3. BENADRYL [Concomitant]
  4. BIRTH CONTROL PILL [Concomitant]

REACTIONS (2)
  - NORMAL DELIVERY [None]
  - UTERINE CONTRACTIONS ABNORMAL [None]
